FAERS Safety Report 23849133 (Version 1)
Quarter: 2024Q2

REPORT INFORMATION
  Report Type: Spontaneous
  Country: US (occurrence: US)
  Receive Date: 20240513
  Receipt Date: 20240513
  Transmission Date: 20240717
  Serious: No
  Sender: FDA-Public Use
  Company Number: US-SA-SAC20240510000308

PATIENT

DRUGS (1)
  1. SARCLISA [Suspect]
     Active Substance: ISATUXIMAB\ISATUXIMAB-IRFC
     Dosage: UNK
     Route: 041

REACTIONS (2)
  - Exposure via skin contact [Recovered/Resolved]
  - Infusion site extravasation [Recovered/Resolved]
